FAERS Safety Report 7207245-6 (Version None)
Quarter: 2011Q1

REPORT INFORMATION
  Report Type: 
  Country: None (occurrence: None)
  Receive Date: 20110103
  Receipt Date: 20101229
  Transmission Date: 20110831
  Serious: Yes (Hospitalization)
  Sender: FDA-Public Use
  Company Number: CN-ROCHE-750408

PATIENT
  Sex: Female
  Weight: 50 kg

DRUGS (7)
  1. CARBOPLATIN [Suspect]
     Dosage: DOSE LEVEL: 5 AUC, EVERY 3 WEEKS
     Route: 042
     Dates: start: 20100907
  2. BEVACIZUMAB [Suspect]
     Dosage: SECOND CYCLE.
     Route: 042
     Dates: start: 20100907
  3. CARBOPLATIN [Suspect]
     Dosage: DOSAGE FORM VIALS, DOSE LEVEL: 6 AUC. DOSE REDUCED.
     Route: 042
     Dates: start: 20100810, end: 20100831
  4. TRASTUZUMAB [Suspect]
     Dosage: LOADING DOSE, TOTAL DOSE 408 MG. DOSAGE FORM: VIAL
     Route: 042
     Dates: start: 20100810
  5. BEVACIZUMAB [Suspect]
     Dosage: DOSAGE FORM: VIALS, LAST DOSE PRIOR TO SAE: 10 AUGUST 2010. DOSE LEVEL: 15 MG/KG
     Route: 042
     Dates: start: 20100810
  6. DOCETAXEL [Suspect]
     Dosage: DOSAGE FORM: VIALS. DOSE REDUCED. DOSE 112 MG.
     Route: 042
     Dates: start: 20100810, end: 20100831
  7. DOCETAXEL [Suspect]
     Route: 042
     Dates: start: 20100907

REACTIONS (1)
  - ALANINE AMINOTRANSFERASE INCREASED [None]
